FAERS Safety Report 4333980-3 (Version None)
Quarter: 2004Q2

REPORT INFORMATION
  Report Type: 
  Country: None (occurrence: None)
  Receive Date: 20040402
  Receipt Date: 20040322
  Transmission Date: 20050107
  Serious: Yes (Hospitalization)
  Sender: FDA-Public Use
  Company Number: S04-USA-01534-01

PATIENT
  Age: 43 Year
  Sex: Female

DRUGS (2)
  1. LEXAPRO [Suspect]
  2. CELEXA [Concomitant]

REACTIONS (7)
  - BACTERIAL INFECTION [None]
  - BODY TEMPERATURE INCREASED [None]
  - DEHYDRATION [None]
  - NAUSEA [None]
  - VERTIGO [None]
  - VOMITING [None]
  - WHITE BLOOD CELL COUNT DECREASED [None]
